FAERS Safety Report 25356558 (Version 2)
Quarter: 2025Q2

REPORT INFORMATION
  Report Type: Spontaneous
  Country: JP (occurrence: JP)
  Receive Date: 20250526
  Receipt Date: 20250624
  Transmission Date: 20250717
  Serious: Yes (Other)
  Sender: Unknown Manufacturer
  Company Number: JP-MTPC-MTPC2025-0009411

PATIENT

DRUGS (2)
  1. EDARAVONE [Suspect]
     Active Substance: EDARAVONE
     Route: 048
  2. EDARAVONE [Suspect]
     Active Substance: EDARAVONE
     Route: 048

REACTIONS (1)
  - Interstitial lung disease [Unknown]
